FAERS Safety Report 12517462 (Version 2)
Quarter: 2016Q3

REPORT INFORMATION
  Report Type: Report from Study
  Country: CN (occurrence: CN)
  Receive Date: 20160630
  Receipt Date: 20160705
  Transmission Date: 20161109
  Serious: Yes (Other)
  Sender: FDA-Public Use
  Company Number: CN-ROCHE-1786653

PATIENT
  Sex: Female
  Weight: 54 kg

DRUGS (1)
  1. AVASTIN [Suspect]
     Active Substance: BEVACIZUMAB
     Indication: NON-SMALL CELL LUNG CANCER
     Route: 041
     Dates: start: 20150723

REACTIONS (6)
  - Pericardial effusion [Unknown]
  - Hypertension [Unknown]
  - Dyspnoea [Unknown]
  - Asthenia [Unknown]
  - Cardiac disorder [Unknown]
  - Vomiting [Unknown]
